FAERS Safety Report 4377213-0 (Version None)
Quarter: 2004Q2

REPORT INFORMATION
  Report Type: 
  Country: None (occurrence: None)
  Receive Date: 20040609
  Receipt Date: 20040217
  Transmission Date: 20050107
  Serious: No
  Sender: FDA-Public Use
  Company Number: 2004199773US

PATIENT
  Age: 72 Year
  Sex: Female

DRUGS (5)
  1. BEXTRA [Suspect]
     Indication: OSTEOARTHRITIS
     Dosage: 10 MG
     Dates: start: 20040206, end: 20040216
  2. ACTONEL [Concomitant]
  3. CELEBREX [Concomitant]
  4. UNITHROID [Concomitant]
  5. NEURONTIN [Concomitant]

REACTIONS (3)
  - FEELING HOT [None]
  - INSOMNIA [None]
  - PSYCHOMOTOR HYPERACTIVITY [None]
